FAERS Safety Report 19241870 (Version 1)
Quarter: 2021Q2

REPORT INFORMATION
  Report Type: Spontaneous
  Country: US (occurrence: US)
  Receive Date: 20210511
  Receipt Date: 20210511
  Transmission Date: 20210717
  Serious: Yes (Hospitalization)
  Sender: FDA-Public Use
  Company Number: None

PATIENT
  Age: 23 Month
  Sex: Female
  Weight: 12 kg

DRUGS (2)
  1. VIGABATRIN. [Concomitant]
     Active Substance: VIGABATRIN
  2. BINIMETINIB [Suspect]
     Active Substance: BINIMETINIB
     Indication: NEUROFIBROMATOSIS
     Route: 048
     Dates: start: 20190404, end: 20201001

REACTIONS (8)
  - Tumour pain [None]
  - Oedema [None]
  - Abdominal distension [None]
  - Dyskinesia [None]
  - Peripheral swelling [None]
  - Rash [None]
  - Swelling face [None]
  - Withdrawal syndrome [None]

NARRATIVE: CASE EVENT DATE: 20201005
